FAERS Safety Report 9367378 (Version 2)
Quarter: 2013Q3

REPORT INFORMATION
  Report Type: Spontaneous
  Country: US (occurrence: US)
  Receive Date: 20130625
  Receipt Date: 20130712
  Transmission Date: 20140515
  Serious: No
  Sender: FDA-Public Use
  Company Number: US-009507513-1306USA009674

PATIENT
  Sex: Female
  Weight: 45.35 kg

DRUGS (1)
  1. SAPHRIS [Suspect]
     Dosage: 5 MG, TWICE A DAY

REACTIONS (1)
  - Constipation [Recovered/Resolved]
